FAERS Safety Report 8905323 (Version 1)
Quarter: 2012Q4

REPORT INFORMATION
  Report Type: 
  Country: CA (occurrence: CA)
  Receive Date: 20121111
  Receipt Date: 20121111
  Transmission Date: 20130627
  Serious: Yes (Other)
  Sender: FDA-Public Use
  Company Number: PHMT2005CA00878

PATIENT
  Sex: Female

DRUGS (13)
  1. SANDOSTATIN LAR [Suspect]
     Indication: ACROMEGALY
     Dosage: 20 mg, every 4 weeks
     Dates: start: 20050609
  2. ALTACE [Concomitant]
  3. TENORMIN [Concomitant]
  4. ATIVAN [Concomitant]
  5. LEVOTHYROXINE SODIUM [Concomitant]
  6. INDAPAMIDE [Concomitant]
  7. ATORVASTATIN CALCIUM [Concomitant]
  8. NITROFURANTOIN [Concomitant]
  9. OXYCOCET [Concomitant]
  10. PREDNISONE [Concomitant]
  11. TEMAZEPAM [Concomitant]
  12. TYLENOL W/CODEINE NO. 4 [Concomitant]
  13. LIPITOR [Concomitant]

REACTIONS (30)
  - Road traffic accident [Unknown]
  - Haematuria [Unknown]
  - Suprapubic pain [Unknown]
  - Dry skin [Unknown]
  - Skin fissures [Unknown]
  - Hyperhidrosis [Unknown]
  - Depression [Unknown]
  - Injection site scab [Unknown]
  - Scab [Unknown]
  - Injection site pruritus [Unknown]
  - Bone pain [Unknown]
  - Injection site mass [Unknown]
  - Gastrointestinal disorder [Unknown]
  - Blood cholesterol increased [Unknown]
  - Discomfort [Unknown]
  - Pain [Unknown]
  - Food craving [Unknown]
  - Thyroid function test abnormal [Unknown]
  - Blood pressure increased [Unknown]
  - Oedema peripheral [Unknown]
  - Anxiety [Unknown]
  - Abdominal distension [Unknown]
  - Headache [Unknown]
  - Asthenia [Unknown]
  - Rash [Unknown]
  - Nausea [Unknown]
  - Decreased appetite [Unknown]
  - Blood glucose increased [Unknown]
  - Heart rate abnormal [Unknown]
  - Fatigue [Unknown]
